FAERS Safety Report 8120941-1 (Version None)
Quarter: 2012Q1

REPORT INFORMATION
  Report Type: 
  Country: None (occurrence: None)
  Receive Date: 20120203
  Receipt Date: 20120124
  Transmission Date: 20120608
  Serious: Yes (Hospitalization)
  Sender: FDA-Public Use
  Company Number: WAES 1201USA03254

PATIENT
  Age: 79 Year
  Sex: Male

DRUGS (5)
  1. ZOCOR [Suspect]
     Indication: HYPERLIPIDAEMIA
     Dosage: 30 MG/DAILY PO
     Route: 048
     Dates: start: 20111130
  2. INSULIN [Concomitant]
  3. AMLODIPINE [Concomitant]
  4. METFORMIN HCL [Concomitant]
  5. BLINDED THERAPY [Concomitant]

REACTIONS (1)
  - COLON CANCER [None]
